FAERS Safety Report 9909653 (Version 2)
Quarter: 2014Q1

REPORT INFORMATION
  Report Type: Spontaneous
  Country: JP (occurrence: JP)
  Receive Date: 20140219
  Receipt Date: 20140328
  Transmission Date: 20141002
  Serious: No
  Sender: FDA-Public Use
  Company Number: JP-GLAXOSMITHKLINE-B0970169A

PATIENT
  Age: 17 Year
  Sex: Male
  Weight: 65 kg

DRUGS (1)
  1. RELENZA [Suspect]
     Indication: INFLUENZA
     Dosage: 10MG TWICE PER DAY
     Route: 055
     Dates: start: 20140127, end: 20140131

REACTIONS (4)
  - Abnormal behaviour [Recovered/Resolved]
  - Laceration [Recovered/Resolved]
  - Hallucination [Recovering/Resolving]
  - Feeling abnormal [Recovering/Resolving]
